FAERS Safety Report 5669624-8 (Version None)
Quarter: 2008Q1

REPORT INFORMATION
  Report Type: 
  Country: None (occurrence: None)
  Receive Date: 20080317
  Receipt Date: 20080314
  Transmission Date: 20080703
  Serious: Yes (Other)
  Sender: FDA-Public Use
  Company Number: A0715384A

PATIENT
  Age: 53 Year
  Sex: Female

DRUGS (3)
  1. ALLI [Suspect]
     Dates: start: 20080311
  2. MULTI-VITAMIN [Concomitant]
  3. VITAMIN E [Concomitant]

REACTIONS (1)
  - VAGINAL HAEMORRHAGE [None]
